FAERS Safety Report 12791774 (Version 2)
Quarter: 2016Q4

REPORT INFORMATION
  Report Type: Spontaneous
  Country: HR (occurrence: HR)
  Receive Date: 20160929
  Receipt Date: 20161010
  Transmission Date: 20170207
  Serious: Yes (Other)
  Sender: FDA-Public Use
  Company Number: HR-BAYER-2016-185252

PATIENT
  Age: 24 Year
  Sex: Male

DRUGS (2)
  1. NEXAVAR [Suspect]
     Active Substance: SORAFENIB
     Indication: HEPATOCELLULAR CARCINOMA
     Dosage: DAILY DOSE 400 MG
     Route: 048
     Dates: start: 2013, end: 201503
  2. NEXAVAR [Suspect]
     Active Substance: SORAFENIB
     Indication: HEPATOCELLULAR CARCINOMA
     Dosage: 400 MG, BID
     Route: 048
     Dates: start: 201304

REACTIONS (5)
  - Palmar-plantar erythrodysaesthesia syndrome [None]
  - Pain [None]
  - Metastases to lung [None]
  - Rash maculo-papular [None]
  - Metastases to lymph nodes [None]

NARRATIVE: CASE EVENT DATE: 201304
